FAERS Safety Report 26065369 (Version 1)
Quarter: 2025Q4

REPORT INFORMATION
  Report Type: Spontaneous
  Country: CA (occurrence: None)
  Receive Date: 20251119
  Receipt Date: 20251119
  Transmission Date: 20260117
  Serious: Yes (Other)
  Sender: ORGANON
  Company Number: CA-ORGANON-O2511CAN001200

PATIENT
  Age: 72 Year
  Sex: Male

DRUGS (8)
  1. MOMETASONE [Suspect]
     Active Substance: MOMETASONE
     Indication: Erosive pustular dermatosis
     Dosage: UNK
     Route: 065
  2. COLCHICINE [Suspect]
     Active Substance: COLCHICINE
     Indication: Erosive pustular dermatosis
     Dosage: UNK
     Route: 065
  3. DAPSONE [Suspect]
     Active Substance: DAPSONE
     Indication: Erosive pustular dermatosis
     Dosage: UNK
     Route: 065
  4. DOVONEX [Suspect]
     Active Substance: CALCIPOTRIENE
     Indication: Product used for unknown indication
     Dosage: UNK
     Route: 065
  5. DOXYCYCLINE [Suspect]
     Active Substance: DOXYCYCLINE
     Indication: Erosive pustular dermatosis
     Dosage: 100 MILLIGRAM
     Route: 065
  6. ISOTRETINOIN [Suspect]
     Active Substance: ISOTRETINOIN
     Indication: Erosive pustular dermatosis
     Dosage: 4 MILLIGRAM
  7. PREDNISONE [Suspect]
     Active Substance: PREDNISONE
     Indication: Erosive pustular dermatosis
     Dosage: UNK
     Route: 065
  8. PROTOPIC [Suspect]
     Active Substance: TACROLIMUS
     Indication: Erosive pustular dermatosis
     Dosage: FORMULATION: OINTMENT TOPICAL
     Route: 065

REACTIONS (2)
  - Basal cell carcinoma [Unknown]
  - Product use in unapproved indication [Unknown]
